FAERS Safety Report 7948355-5 (Version None)
Quarter: 2011Q4

REPORT INFORMATION
  Report Type: 
  Country: None (occurrence: None)
  Receive Date: 20111130
  Receipt Date: 20111122
  Transmission Date: 20120403
  Serious: Yes (Other)
  Sender: FDA-Public Use
  Company Number: US-AMGEN-USASP2011061704

PATIENT
  Age: 67 Year
  Sex: Male
  Weight: 86 kg

DRUGS (14)
  1. SENSIPAR [Suspect]
     Indication: PRODUCT USED FOR UNKNOWN INDICATION
     Dosage: UNK
  2. ACTOS [Concomitant]
  3. COZAAR [Concomitant]
  4. EPOGEN [Suspect]
     Indication: RENAL FAILURE CHRONIC
     Dosage: 16500 IU, 3 TIMES/WK
     Dates: start: 20111001
  5. NEXIUM [Concomitant]
  6. LASIX [Concomitant]
  7. COUMADIN [Concomitant]
  8. ARANESP [Suspect]
     Indication: RENAL FAILURE CHRONIC
     Dosage: UNK
  9. PREDNISONE TAB [Concomitant]
  10. SIMVASTATIN [Concomitant]
  11. VITAMIN D [Concomitant]
  12. EPOGEN [Suspect]
     Indication: DIALYSIS
     Dosage: 17600 IU, 3 TIMES/WK
     Dates: start: 20111001
  13. EPOGEN [Suspect]
     Dosage: 22000 IU, 3 TIMES/WK
  14. VERAPAMIL [Concomitant]

REACTIONS (3)
  - RENAL FAILURE CHRONIC [None]
  - DRUG INEFFECTIVE [None]
  - APLASIA PURE RED CELL [None]
